FAERS Safety Report 11658902 (Version 3)
Quarter: 2016Q4

REPORT INFORMATION
  Report Type: Report from Study
  Country: IT (occurrence: IT)
  Receive Date: 20151026
  Receipt Date: 20161013
  Transmission Date: 20170206
  Serious: No
  Sender: FDA-Public Use
  Company Number: PHHY2015IT134810

PATIENT
  Age: 48 Year
  Sex: Female

DRUGS (1)
  1. TASIGNA [Suspect]
     Active Substance: NILOTINIB
     Indication: CHRONIC MYELOID LEUKAEMIA
     Dosage: UNK
     Route: 048

REACTIONS (13)
  - Hepatic steatosis [Unknown]
  - Hypercholesterolaemia [Unknown]
  - Hepatomegaly [Unknown]
  - Hypokalaemia [Unknown]
  - Hypertriglyceridaemia [Unknown]
  - Blood lactate dehydrogenase increased [Unknown]
  - Red blood cell sedimentation rate increased [Unknown]
  - Dyspnoea [Unknown]
  - Hyperglycaemia [Unknown]
  - C-reactive protein increased [Unknown]
  - Sciatica [Unknown]
  - Blood creatine phosphokinase increased [Unknown]
  - Hypertension [Unknown]

NARRATIVE: CASE EVENT DATE: 20140101
